FAERS Safety Report 18221632 (Version 1)
Quarter: 2020Q3

REPORT INFORMATION
  Report Type: Spontaneous
  Country: AR (occurrence: AR)
  Receive Date: 20200902
  Receipt Date: 20200902
  Transmission Date: 20201103
  Serious: Yes (Hospitalization)
  Sender: FDA-Public Use
  Company Number: AR-PFIZER INC-2020338746

PATIENT
  Age: 85 Year
  Sex: Female

DRUGS (4)
  1. XELJANZ XR [Suspect]
     Active Substance: TOFACITINIB CITRATE
     Indication: RHEUMATOID ARTHRITIS
     Dosage: 11 MG, DAILY
     Dates: start: 20190731
  2. ARTRAIT [METHOTREXATE SODIUM] [Concomitant]
     Dosage: UNK
  3. CORTIPYREN B [Concomitant]
     Dosage: UNK
  4. ACIFOL [FOLIC ACID] [Concomitant]
     Dosage: UNK

REACTIONS (2)
  - Osteoarthritis [Recovering/Resolving]
  - Gait inability [Unknown]
